FAERS Safety Report 6698791-2 (Version None)
Quarter: 2010Q2

REPORT INFORMATION
  Report Type: 
  Country: None (occurrence: None)
  Receive Date: 20100427
  Receipt Date: 20100419
  Transmission Date: 20101027
  Serious: Yes (Other)
  Sender: FDA-Public Use
  Company Number: PHHO2010FR06137

PATIENT
  Sex: Male

DRUGS (3)
  1. CYCLOSPORINE [Suspect]
     Indication: RENAL TRANSPLANT
     Dosage: 200MG/DAY
     Route: 048
     Dates: start: 20081119
  2. CELLCEPT [Suspect]
     Indication: RENAL TRANSPLANT
     Dosage: 2G/DAY
     Dates: start: 20061207
  3. CORTANCYL [Suspect]
     Indication: RENAL TRANSPLANT
     Dosage: 2.5MG/DAY
     Route: 048
     Dates: start: 20070221

REACTIONS (2)
  - COLON POLYPECTOMY [None]
  - COLONIC POLYP [None]
